FAERS Safety Report 8543823 (Version 4)
Quarter: 2013Q1

REPORT INFORMATION
  Report Type: Report from Study
  Country: JP (occurrence: JP)
  Receive Date: 20120503
  Receipt Date: 20130311
  Transmission Date: 20140127
  Serious: Yes (Other)
  Sender: FDA-Public Use
  Company Number: PHHY2012JP036559

PATIENT
  Sex: Male
  Weight: 56 kg

DRUGS (13)
  1. ICL670A [Suspect]
     Indication: MYELODYSPLASTIC SYNDROME
     Dosage: 1000 MG, DAILY
     Route: 048
     Dates: start: 20100302, end: 20100920
  2. ICL670A [Suspect]
     Dosage: 500 MG, DAILY
     Route: 048
     Dates: start: 20110126, end: 20110302
  3. NEORAL [Concomitant]
     Indication: MYELODYSPLASTIC SYNDROME
     Dosage: 100 MG, UNK
     Route: 048
     Dates: start: 20100302, end: 20110302
  4. BAKTAR [Concomitant]
     Indication: PROPHYLAXIS
     Dosage: UNK UKN, UNK
     Route: 048
     Dates: start: 20100302, end: 20110302
  5. PREDNISOLONE [Concomitant]
     Indication: MYELODYSPLASTIC SYNDROME
     Dosage: 10 MG, UNK
     Route: 048
     Dates: start: 20100302, end: 20110302
  6. VASOLAN [Concomitant]
     Dosage: 120 MG, UNK
     Route: 048
     Dates: start: 20100302, end: 20110302
  7. WARFARIN [Concomitant]
     Dosage: 3 MG, UNK
     Route: 048
     Dates: start: 20100302, end: 20110302
  8. LANIRAPID [Concomitant]
     Dosage: 0.1 MG, UNK
     Route: 048
     Dates: start: 20100302, end: 20110302
  9. HERBESSER [Concomitant]
     Dosage: 100 MG, UNK
     Route: 048
     Dates: start: 20100302, end: 20110302
  10. SUNRYTHM [Concomitant]
     Dosage: 150 MG, UNK
     Route: 048
     Dates: start: 20100302, end: 20110302
  11. LANTUS [Concomitant]
     Dosage: 6 IU, UNK
     Dates: start: 20100607, end: 20110302
  12. RED BLOOD CELLS, CONCENTRATED [Concomitant]
     Dosage: 3 U, EVERY 2 WEEKS
     Dates: start: 20100302, end: 20100902
  13. RED BLOOD CELLS, CONCENTRATED [Concomitant]
     Dosage: 3 U, EVERY 3 WEEKS
     Dates: start: 20100903, end: 20110302

REACTIONS (4)
  - Febrile neutropenia [Unknown]
  - Glucose tolerance impaired [Unknown]
  - Infection [Recovered/Resolved]
  - General physical health deterioration [Recovered/Resolved]
